FAERS Safety Report 17660247 (Version 1)
Quarter: 2020Q2

REPORT INFORMATION
  Report Type: Spontaneous
  Country: US (occurrence: US)
  Receive Date: 20200410
  Receipt Date: 20200410
  Transmission Date: 20200713
  Serious: No
  Sender: FDA-Public Use
  Company Number: None

PATIENT
  Age: 67 Year
  Sex: Female
  Weight: 59.8 kg

DRUGS (2)
  1. GAMMAGARD [Suspect]
     Active Substance: HUMAN IMMUNOGLOBULIN G
     Indication: RESPIRATORY TRACT INFECTION
     Dosage: EVERY 3 MONTHS
     Route: 042
     Dates: start: 20200327, end: 20200327
  2. GAMMAGARD [Suspect]
     Active Substance: HUMAN IMMUNOGLOBULIN G
     Indication: RESPIRATORY TRACT INFECTION
     Dosage: ?          OTHER FREQUENCY:EVERY 3 MONTHS FOR;?
     Route: 042
     Dates: start: 20200327, end: 20200327

REACTIONS (5)
  - Back pain [None]
  - Chills [None]
  - Flushing [None]
  - Infusion related reaction [None]
  - Hypertension [None]

NARRATIVE: CASE EVENT DATE: 20200327
